FAERS Safety Report 5193224-X (Version None)
Quarter: 2006Q4

REPORT INFORMATION
  Report Type: 
  Country: None (occurrence: None)
  Receive Date: 20061228
  Receipt Date: 20060714
  Transmission Date: 20070319
  Serious: No
  Sender: FDA-Public Use
  Company Number: US-GLAXOSMITHKLINE-A0612316A

PATIENT
  Age: 80 Year
  Sex: Male

DRUGS (10)
  1. AVODART [Suspect]
     Dosage: .5MG PER DAY
     Route: 048
     Dates: start: 20060707
  2. COUMADIN [Concomitant]
  3. NEXIUM [Concomitant]
  4. LEXAPRO [Concomitant]
  5. XANAX [Concomitant]
  6. MAVIK [Concomitant]
  7. TOPROL-XL [Concomitant]
  8. CELEBREX [Concomitant]
  9. LASIX [Concomitant]
  10. MULTI-VITAMIN [Concomitant]

REACTIONS (1)
  - DIARRHOEA [None]
